FAERS Safety Report 8451820-8 (Version None)
Quarter: 2012Q2

REPORT INFORMATION
  Report Type: 
  Country: None (occurrence: None)
  Receive Date: 20120620
  Receipt Date: 20120319
  Transmission Date: 20120825
  Serious: No
  Sender: FDA-Public Use
  Company Number: US-VERTEX PHARMACEUTICALS INC.-AE-2012-003950

PATIENT
  Sex: Male
  Weight: 90.8 kg

DRUGS (8)
  1. NABUMETONE [Concomitant]
  2. PREDNISONE TAB [Concomitant]
     Dates: start: 20120223, end: 20120311
  3. PREDNISONE TAB [Concomitant]
     Dates: start: 20120312
  4. INCIVEK [Suspect]
     Indication: HEPATITIS C
     Route: 048
     Dates: start: 20120213
  5. PEGASYS [Concomitant]
     Indication: HEPATITIS C
     Route: 058
     Dates: start: 20120314
  6. ZOLOFT [Concomitant]
  7. OXYCODONE HCL [Concomitant]
  8. RIBAVIRIN [Concomitant]
     Indication: HEPATITIS C
     Dates: start: 20120314

REACTIONS (2)
  - ARTHRALGIA [None]
  - PYREXIA [None]
